FAERS Safety Report 4848747-7 (Version None)
Quarter: 2005Q4

REPORT INFORMATION
  Report Type: 
  Country: None (occurrence: None)
  Receive Date: 20051206
  Receipt Date: 20051020
  Transmission Date: 20060501
  Serious: Yes (Hospitalization)
  Sender: FDA-Public Use
  Company Number: MPS1-10454

PATIENT
  Age: 12 Month
  Sex: Female

DRUGS (3)
  1. ALDURAZYME [Suspect]
     Indication: MUCOPOLYSACCHARIDOSIS I
     Dosage: 100 U/KG QWK IV
     Route: 042
  2. ANTIHISTAMINE SEDATIVE (ANTIHISTAMINE) [Concomitant]
  3. ANTIPYRETIC [Concomitant]

REACTIONS (6)
  - BACTERAEMIA [None]
  - GRAFT VERSUS HOST DISEASE [None]
  - HEPATOTOXICITY [None]
  - HYPERTHERMIA [None]
  - THERAPEUTIC AGENT TOXICITY [None]
  - URINARY TRACT INFECTION [None]
